FAERS Safety Report 12712931 (Version 4)
Quarter: 2016Q4

REPORT INFORMATION
  Report Type: Report from Study
  Country: JP (occurrence: JP)
  Receive Date: 20160902
  Receipt Date: 20161107
  Transmission Date: 20170207
  Serious: Yes (Hospitalization, Other)
  Sender: FDA-Public Use
  Company Number: JP-B.I. PHARMACEUTICALS,INC./RIDGEFIELD-2016-BI-54760II

PATIENT
  Age: 69 Year
  Sex: Male
  Weight: 69.2 kg

DRUGS (8)
  1. ADALAT CC [Concomitant]
     Active Substance: NIFEDIPINE
     Indication: HYPERTENSION
     Dosage: CR; STRENGTH: 20MG
     Route: 048
     Dates: start: 20151024
  2. LYRICA [Concomitant]
     Active Substance: PREGABALIN
     Indication: PERIPHERAL SENSORY NEUROPATHY
     Dosage: STRENGTH: 150MG
     Route: 048
     Dates: start: 20160107
  3. BELSOMRA [Concomitant]
     Active Substance: SUVOREXANT
     Indication: INSOMNIA
     Dosage: STRENGTH: 15MG; DAILY DOSE: 15MG EVERY BED TIME (QHS)
     Route: 048
     Dates: start: 20160510
  4. HACHIAZULE [Concomitant]
     Indication: STOMATITIS
     Dosage: FORMULATION: GARGLE/GRAN, STRENGTH: 2G
     Route: 061
     Dates: start: 20160219
  5. LONSURF [Suspect]
     Active Substance: TIPIRACIL HYDROCHLORIDE\TRIFLURIDINE
     Indication: COLORECTAL CANCER
     Dosage: COMBINATION
     Route: 048
     Dates: start: 20160701, end: 20160929
  6. TETRAMIDE [Concomitant]
     Active Substance: MIANSERIN
     Indication: INSOMNIA
     Dosage: STRENGTH: 10MG
     Route: 048
     Dates: start: 20150426
  7. BIBF 1120 [Suspect]
     Active Substance: NINTEDANIB
     Indication: COLORECTAL CANCER
     Route: 065
     Dates: start: 20160701
  8. CYMBALTA [Concomitant]
     Active Substance: DULOXETINE HYDROCHLORIDE
     Indication: PERIPHERAL SENSORY NEUROPATHY
     Route: 048
     Dates: start: 20160624

REACTIONS (12)
  - Pneumonitis [Recovering/Resolving]
  - Aspartate aminotransferase increased [Recovered/Resolved]
  - Diarrhoea [Not Recovered/Not Resolved]
  - Pneumonitis [Not Recovered/Not Resolved]
  - White blood cell count decreased [Recovered/Resolved]
  - Alanine aminotransferase increased [Recovered/Resolved]
  - Aspartate aminotransferase increased [Not Recovered/Not Resolved]
  - Proteinuria [Not Recovered/Not Resolved]
  - Neutrophil count decreased [Recovered/Resolved]
  - Blood alkaline phosphatase increased [Not Recovered/Not Resolved]
  - Platelet count decreased [Recovered/Resolved]
  - Fatigue [Not Recovered/Not Resolved]

NARRATIVE: CASE EVENT DATE: 20160714
